FAERS Safety Report 20689661 (Version 2)
Quarter: 2022Q2

REPORT INFORMATION
  Report Type: Spontaneous
  Country: FR (occurrence: FR)
  Receive Date: 20220408
  Receipt Date: 20220420
  Transmission Date: 20220721
  Serious: No
  Sender: FDA-Public Use
  Company Number: FR-PFIZER INC-202200516403

PATIENT
  Age: 75 Year
  Sex: Female

DRUGS (1)
  1. PAXLOVID [Suspect]
     Active Substance: NIRMATRELVIR\RITONAVIR
     Indication: COVID-19 treatment
     Dosage: 3 DF, 2X/DAY (1 PINK TABLET AND 2 WHITE TABLETS ([PF-07321332 150MG]/[RITONAVIR 200MG)
     Route: 048
     Dates: start: 20220331, end: 20220402

REACTIONS (3)
  - Incorrect product administration duration [Recovered/Resolved]
  - Product prescribing error [Unknown]
  - Incorrect dose administered [Recovered/Resolved]

NARRATIVE: CASE EVENT DATE: 20220331
